FAERS Safety Report 10304757 (Version 1)
Quarter: 2014Q3

REPORT INFORMATION
  Report Type: Spontaneous
  Country: PR (occurrence: None)
  Receive Date: 20140710
  Receipt Date: 20140710
  Transmission Date: 20150326
  Serious: Yes (Other)
  Sender: FDA-Public Use
  Company Number: None

PATIENT
  Age: 63 Year
  Sex: Male
  Weight: 76.2 kg

DRUGS (1)
  1. SYMBICORT [Suspect]
     Active Substance: BUDESONIDE\FORMOTEROL FUMARATE DIHYDRATE
     Indication: PNEUMONIA
     Dosage: 2 INALATIONS, TWICE DAILY, TAKEN BY MOUTH
     Route: 048
     Dates: start: 20140530, end: 20140703

REACTIONS (5)
  - Rash [None]
  - Heart rate increased [None]
  - Skin disorder [None]
  - Skin infection [None]
  - Pruritus [None]

NARRATIVE: CASE EVENT DATE: 20140527
